FAERS Safety Report 13451808 (Version 1)
Quarter: 2017Q2

REPORT INFORMATION
  Report Type: Spontaneous
  Country: US (occurrence: US)
  Receive Date: 20170417
  Receipt Date: 20170417
  Transmission Date: 20170830
  Serious: Yes (Hospitalization)
  Sender: FDA-Public Use
  Company Number: None

PATIENT
  Sex: Male

DRUGS (1)
  1. SUTENT [Suspect]
     Active Substance: SUNITINIB MALATE
     Route: 048
     Dates: start: 20170310

REACTIONS (6)
  - Malnutrition [None]
  - Nonspecific reaction [None]
  - Decreased appetite [None]
  - Infection [None]
  - Gait disturbance [None]
  - Asthenia [None]
